FAERS Safety Report 13163874 (Version 1)
Quarter: 2017Q1

REPORT INFORMATION
  Report Type: Report from Study
  Country: IT (occurrence: IT)
  Receive Date: 20170130
  Receipt Date: 20170130
  Transmission Date: 20170428
  Serious: Yes (Other)
  Sender: FDA-Public Use
  Company Number: IT-BAXALTA-2017BLT000651

PATIENT
  Age: 46 Year
  Sex: Female

DRUGS (2)
  1. KIOVIG [Suspect]
     Active Substance: HUMAN IMMUNOGLOBULIN G
     Indication: OFF LABEL USE
  2. KIOVIG [Suspect]
     Active Substance: HUMAN IMMUNOGLOBULIN G
     Indication: MYOPATHY
     Dosage: 2 GR/KG, 1X A MONTH
     Route: 042

REACTIONS (1)
  - Arrhythmia [Recovered/Resolved]
